FAERS Safety Report 5562290-1 (Version None)
Quarter: 2007Q4

REPORT INFORMATION
  Report Type: 
  Country: None (occurrence: None)
  Receive Date: 20071215
  Receipt Date: 20070921
  Transmission Date: 20080405
  Serious: No
  Sender: FDA-Public Use
  Company Number: US-AMGEN-US244410

PATIENT
  Sex: Female

DRUGS (10)
  1. ARANESP [Suspect]
     Indication: DRUG USE FOR UNKNOWN INDICATION
     Route: 065
     Dates: start: 20060101, end: 20070101
  2. LASIX [Concomitant]
     Route: 065
  3. ACTOS [Concomitant]
     Route: 065
  4. THYROID TAB [Concomitant]
     Route: 065
  5. BYETTA [Concomitant]
     Route: 065
  6. COREG [Concomitant]
     Route: 065
  7. COZAAR [Concomitant]
     Route: 065
  8. FOLIC ACID [Concomitant]
     Route: 065
  9. ZOCOR [Concomitant]
     Route: 065
  10. HEMATINIC [Concomitant]
     Route: 065

REACTIONS (1)
  - ANAEMIA [None]
